FAERS Safety Report 4492172-8 (Version None)
Quarter: 2004Q4

REPORT INFORMATION
  Report Type: 
  Country: None (occurrence: None)
  Receive Date: 20041101
  Receipt Date: 20041018
  Transmission Date: 20050328
  Serious: Yes (Other)
  Sender: FDA-Public Use
  Company Number: 2004079399

PATIENT
  Age: 36 Year
  Sex: Female
  Weight: 57.6068 kg

DRUGS (3)
  1. BENADRYL [Suspect]
     Indication: ANAPHYLAXIS PROPHYLAXIS
     Dosage: 50 MG (50 MG, 1 IN 1 D), INTRAVENOUS
     Route: 042
     Dates: start: 20041013, end: 20041013
  2. HEPARIN [Concomitant]
  3. POTASSIUM (POTASSIUM) [Concomitant]

REACTIONS (6)
  - BLOOD PRESSURE FLUCTUATION [None]
  - BLOOD PRESSURE IMMEASURABLE [None]
  - CHILLS [None]
  - CONVULSION [None]
  - HEART RATE INCREASED [None]
  - PAIN IN EXTREMITY [None]
